FAERS Safety Report 6196510-X (Version None)
Quarter: 2009Q2

REPORT INFORMATION
  Report Type: 
  Country: None (occurrence: None)
  Receive Date: 20090520
  Receipt Date: 20090119
  Transmission Date: 20091009
  Serious: No
  Sender: FDA-Public Use
  Company Number: US-ABBOTT-09P-163-0498833-00

PATIENT
  Sex: Female

DRUGS (4)
  1. ZEMPLAR [Suspect]
     Indication: RENAL DISORDER
     Dates: start: 20080301
  2. BENICAR [Concomitant]
     Indication: BLOOD PRESSURE
  3. LETHOTHYROXINE [Concomitant]
     Indication: DRUG USE FOR UNKNOWN INDICATION
  4. DIURETIC [Concomitant]
     Indication: FLUID RETENTION

REACTIONS (1)
  - NASOPHARYNGITIS [None]
